FAERS Safety Report 10681610 (Version 1)
Quarter: 2014Q4

REPORT INFORMATION
  Report Type: Report from Study
  Country: BE (occurrence: None)
  Receive Date: 20141224
  Receipt Date: 20141224
  Transmission Date: 20150529
  Serious: Yes (Hospitalization, Other)
  Sender: FDA-Public Use
  Company Number: B1018747A

PATIENT
  Age: 42 Year
  Sex: Female
  Weight: 46 kg

DRUGS (5)
  1. INTELENCE (ETRAVIRINE) [Concomitant]
  2. RITONAVIR (RITONAVIR) [Concomitant]
     Active Substance: RITONAVIR
  3. PREZISTA [Concomitant]
     Active Substance: DARUNAVIR ETHANOLATE
  4. DOLUTEGRAVIR [Suspect]
     Active Substance: DOLUTEGRAVIR
     Indication: HIV INFECTION
     Route: 048
     Dates: start: 20140731
  5. ESCITALOPRAM (CITALOPRAM) [Concomitant]

REACTIONS (9)
  - Thrombocytopenia [None]
  - Neutrophil percentage decreased [None]
  - Death of relative [None]
  - Lymphocyte percentage increased [None]
  - Alcohol abuse [None]
  - Hepatitis acute [None]
  - Liver injury [None]
  - Basophil count increased [None]
  - Monocyte percentage increased [None]

NARRATIVE: CASE EVENT DATE: 20140715
